FAERS Safety Report 5909611-5 (Version None)
Quarter: 2008Q4

REPORT INFORMATION
  Report Type: 
  Country: None (occurrence: None)
  Receive Date: 20081001
  Receipt Date: 20080925
  Transmission Date: 20090506
  Serious: Yes (Hospitalization)
  Sender: FDA-Public Use
  Company Number: TPG2007A00424

PATIENT
  Age: 62 Year
  Sex: Female

DRUGS (5)
  1. PIOGLITAZONE HCL [Suspect]
     Indication: DRUG USE FOR UNKNOWN INDICATION
     Dosage: 45 MG (45 MG, 1 IN 1 D) PER ORAL
     Route: 048
     Dates: start: 20070405, end: 20070604
  2. RAMIPRIL [Suspect]
     Indication: DRUG USE FOR UNKNOWN INDICATION
     Dosage: 5 MG PER ORAL, 2.5 MG PER ORAL
     Route: 048
     Dates: start: 20070405, end: 20070604
  3. RAMIPRIL [Suspect]
     Indication: DRUG USE FOR UNKNOWN INDICATION
     Dosage: 5 MG PER ORAL, 2.5 MG PER ORAL
     Route: 048
     Dates: start: 20070605
  4. METOPROLOL TARTRATE [Concomitant]
  5. HYDROCHLOROTHIAZIDE [Concomitant]

REACTIONS (16)
  - AFFECTIVE DISORDER [None]
  - DISTURBANCE IN ATTENTION [None]
  - FALL [None]
  - HEADACHE [None]
  - HEMIPARESIS [None]
  - HYPERGLYCAEMIA [None]
  - HYPOGLYCAEMIA [None]
  - LOSS OF CONSCIOUSNESS [None]
  - MALAISE [None]
  - MOTOR DYSFUNCTION [None]
  - REFLEXES ABNORMAL [None]
  - SENSATION OF HEAVINESS [None]
  - SOMNOLENCE [None]
  - SUBDURAL HAEMATOMA [None]
  - SUPRAVENTRICULAR EXTRASYSTOLES [None]
  - VOMITING [None]
